FAERS Safety Report 21784465 (Version 1)
Quarter: 2022Q4

REPORT INFORMATION
  Report Type: Spontaneous
  Country: US (occurrence: None)
  Receive Date: 20221227
  Receipt Date: 20221227
  Transmission Date: 20230113
  Serious: Yes (unspecified)
  Sender: FDA-Public Use
  Company Number: None

PATIENT
  Age: 69 Year
  Sex: Male
  Weight: 136.98 kg

DRUGS (3)
  1. OTEZLA [Suspect]
     Active Substance: APREMILAST
     Indication: Gout
     Dosage: FREQUENCY : TWICE A DAY;?
     Route: 048
     Dates: start: 20221201, end: 20221214
  2. OTEZLA [Suspect]
     Active Substance: APREMILAST
     Indication: Essential tremor
  3. OTEZLA [Suspect]
     Active Substance: APREMILAST
     Indication: Depression

REACTIONS (7)
  - Gout [None]
  - Essential tremor [None]
  - Dysgraphia [None]
  - Hypophagia [None]
  - Loss of personal independence in daily activities [None]
  - Depressed mood [None]
  - Depression [None]

NARRATIVE: CASE EVENT DATE: 20221213
